FAERS Safety Report 10537461 (Version 1)
Quarter: 2014Q4

REPORT INFORMATION
  Report Type: Spontaneous
  Country: US (occurrence: None)
  Receive Date: 20141022
  Receipt Date: 20141022
  Transmission Date: 20150529
  Serious: Yes (Death)
  Sender: FDA-Public Use
  Company Number: None

PATIENT
  Age: 36 Year
  Sex: Male
  Weight: 132.7 kg

DRUGS (10)
  1. HYDROMORPHONE [Concomitant]
     Active Substance: HYDROMORPHONE
  2. FUROSEMIDE. [Concomitant]
     Active Substance: FUROSEMIDE
  3. METHADONE [Concomitant]
     Active Substance: METHADONE HYDROCHLORIDE
  4. METHOCARBAMOL. [Concomitant]
     Active Substance: METHOCARBAMOL
  5. ALPHANINE SD [Suspect]
     Active Substance: COAGULATION FACTOR IX HUMAN
  6. POTASSIUM CHLORIDE. [Concomitant]
     Active Substance: POTASSIUM CHLORIDE
  7. BECLOMETHASONE INH [Concomitant]
  8. LORATADINE. [Concomitant]
     Active Substance: LORATADINE
  9. CELECOZIB [Concomitant]
  10. ALBUTEROL INH [Concomitant]

REACTIONS (5)
  - Gastrointestinal disorder [None]
  - Intestinal obstruction [None]
  - Dysuria [None]
  - Gastric perforation [None]
  - Intra-abdominal haemorrhage [None]

NARRATIVE: CASE EVENT DATE: 20140805
